FAERS Safety Report 8482246-9 (Version None)
Quarter: 2012Q3

REPORT INFORMATION
  Report Type: 
  Country: None (occurrence: None)
  Receive Date: 20120702
  Receipt Date: 20120627
  Transmission Date: 20120928
  Serious: No
  Sender: FDA-Public Use
  Company Number: US-PFIZER INC-2012155176

PATIENT
  Sex: Female
  Weight: 120.18 kg

DRUGS (4)
  1. ULTRAM [Concomitant]
     Dosage: UNK
  2. GENOTROPIN [Suspect]
     Dosage: 0.4 MG, DAILY
     Dates: start: 20120601
  3. GENOTROPIN [Suspect]
     Indication: GROWTH HORMONE DEFICIENCY
     Dosage: 0.4 MG, 5 DAYS A WEEK
     Dates: end: 20120601
  4. MOBIC [Concomitant]
     Dosage: UNK

REACTIONS (3)
  - PAIN IN EXTREMITY [None]
  - HEADACHE [None]
  - OEDEMA PERIPHERAL [None]
